FAERS Safety Report 25657951 (Version 1)
Quarter: 2025Q3

REPORT INFORMATION
  Report Type: Spontaneous
  Country: US (occurrence: US)
  Receive Date: 20250808
  Receipt Date: 20250808
  Transmission Date: 20251020
  Serious: No
  Sender: RECKITT BENCKISER
  Company Number: US-PROD-AS2-212756134-20-24-USA-RB-0016780

PATIENT
  Age: 76 Year

DRUGS (4)
  1. MUCINEX [Suspect]
     Active Substance: GUAIFENESIN
     Indication: Productive cough
     Dosage: 1 TABLET EVERY 12 HRS
     Route: 048
     Dates: start: 20241227
  2. Carvedilol 1a [Concomitant]
     Indication: Product used for unknown indication
     Dosage: 6.25 MG
     Route: 065
  3. ATORVASTATIN [Concomitant]
     Active Substance: ATORVASTATIN
     Indication: Product used for unknown indication
     Dosage: 40 MG
     Route: 065
  4. TELMISARTAN [Concomitant]
     Active Substance: TELMISARTAN
     Indication: Product used for unknown indication
     Dosage: 40 MG
     Route: 065

REACTIONS (4)
  - Renal pain [Recovered/Resolved]
  - Back pain [Recovered/Resolved]
  - Product use in unapproved indication [Recovered/Resolved]
  - Cystitis [Not Recovered/Not Resolved]

NARRATIVE: CASE EVENT DATE: 20241201
